FAERS Safety Report 4862900-8 (Version None)
Quarter: 2005Q4

REPORT INFORMATION
  Report Type: 
  Country: None (occurrence: None)
  Receive Date: 20051129
  Receipt Date: 20050822
  Transmission Date: 20060501
  Serious: No
  Sender: FDA-Public Use
  Company Number: WAES 0508USA03802

PATIENT
  Age: 76 Year
  Sex: Male
  Weight: 71.2147 kg

DRUGS (1)
  1. ZETIA [Suspect]
     Indication: BLOOD CHOLESTEROL INCREASED
     Dosage: 10 MG/DAILY/PO
     Route: 048
     Dates: end: 20050101

REACTIONS (2)
  - ABDOMINAL DISTENSION [None]
  - DIZZINESS [None]
